FAERS Safety Report 9401312 (Version 2)
Quarter: 2013Q3

REPORT INFORMATION
  Report Type: Spontaneous
  Country: US (occurrence: US)
  Receive Date: 20130715
  Receipt Date: 20130722
  Transmission Date: 20140515
  Serious: Yes (Hospitalization)
  Sender: FDA-Public Use
  Company Number: US-GILEAD-2013-0078934

PATIENT
  Age: 55 Year
  Sex: Female

DRUGS (2)
  1. LETAIRIS [Suspect]
     Indication: PULMONARY ARTERIAL HYPERTENSION
     Dosage: 10 MG, QD
     Dates: start: 20130125
  2. LETAIRIS [Suspect]
     Indication: DRUG ABUSE

REACTIONS (2)
  - Sepsis [Recovered/Resolved]
  - Wound [Recovered/Resolved]
